FAERS Safety Report 8992646 (Version 4)
Quarter: 2013Q3

REPORT INFORMATION
  Report Type: Report from Study
  Country: CA (occurrence: CA)
  Receive Date: 20130101
  Receipt Date: 20130819
  Transmission Date: 20140515
  Serious: Yes (Hospitalization, Other)
  Sender: FDA-Public Use
  Company Number: PHHY2012CA118033

PATIENT
  Age: 66 Year
  Sex: Male

DRUGS (9)
  1. TASIGNA [Suspect]
     Indication: CHRONIC MYELOID LEUKAEMIA
     Dosage: 400 MG, BID
     Route: 048
     Dates: start: 201001
  2. TASIGNA [Suspect]
     Dosage: 200 MG, QD
     Route: 048
     Dates: start: 201306
  3. TASIGNA [Suspect]
     Dosage: 400 MG, QD
     Route: 048
  4. CRESTOR [Concomitant]
  5. ATENOLOL [Concomitant]
  6. CALCIFEROL [Concomitant]
  7. VITAMIN B12 [Concomitant]
  8. AMLODIPINE [Concomitant]
  9. RAMIPRIL [Concomitant]

REACTIONS (8)
  - Arterial occlusive disease [Unknown]
  - Renal impairment [Recovering/Resolving]
  - Angina pectoris [Unknown]
  - Bone disorder [Unknown]
  - Musculoskeletal pain [Recovered/Resolved]
  - Chest pain [Recovered/Resolved]
  - Headache [Unknown]
  - Pain in extremity [Recovered/Resolved]
